FAERS Safety Report 14798127 (Version 1)
Quarter: 2018Q2

REPORT INFORMATION
  Report Type: Spontaneous
  Country: US (occurrence: US)
  Receive Date: 20180414
  Receipt Date: 20180414
  Transmission Date: 20180711
  Serious: Yes (Other)
  Sender: FDA-Public Use
  Company Number: None

PATIENT
  Age: 47 Year
  Sex: Female
  Weight: 105.3 kg

DRUGS (10)
  1. BELSOMRA [Suspect]
     Active Substance: SUVOREXANT
     Indication: INSOMNIA
     Route: 048
  2. ACTOS [Concomitant]
     Active Substance: PIOGLITAZONE HYDROCHLORIDE
  3. LOSARTAN. [Concomitant]
     Active Substance: LOSARTAN
  4. DILTIAZEM. [Concomitant]
     Active Substance: DILTIAZEM
  5. POTASSIUM [Concomitant]
     Active Substance: POTASSIUM
  6. MELATONIN [Concomitant]
     Active Substance: MELATONIN
  7. VITAMIN D [Concomitant]
     Active Substance: CHOLECALCIFEROL
  8. LEVOTHYROXINE. [Concomitant]
     Active Substance: LEVOTHYROXINE
  9. PREVACID [Concomitant]
     Active Substance: LANSOPRAZOLE
  10. MIRTAZEPINE [Concomitant]
     Active Substance: MIRTAZAPINE

REACTIONS (3)
  - Diarrhoea [None]
  - Abdominal distension [None]
  - Abdominal pain [None]

NARRATIVE: CASE EVENT DATE: 20180413
